FAERS Safety Report 9303837 (Version 1)
Quarter: 2013Q2

REPORT INFORMATION
  Report Type: Spontaneous
  Country: CN (occurrence: CN)
  Receive Date: 20130522
  Receipt Date: 20130522
  Transmission Date: 20140414
  Serious: Yes (Hospitalization)
  Sender: FDA-Public Use
  Company Number: CN-ASTRAZENECA-2013SE35539

PATIENT
  Age: 10871 Day
  Sex: Male
  Weight: 70 kg

DRUGS (4)
  1. ESOMEPRAZOLE MAGNESIUM [Suspect]
     Indication: GASTRIC ULCER
     Route: 048
     Dates: start: 20110914, end: 20110921
  2. COLLOIDAL BISMUTH PECTIN [Suspect]
     Indication: GASTRIC ULCER
     Route: 048
     Dates: start: 20110914, end: 20110921
  3. LEVOFLOXACIN MESYLATE [Suspect]
     Indication: GASTRIC ULCER
     Route: 048
     Dates: start: 20110914, end: 20110921
  4. CLARITHROMYCIN [Suspect]
     Indication: GASTRIC ULCER
     Route: 048
     Dates: start: 20110914, end: 20110921

REACTIONS (5)
  - Drug eruption [Recovering/Resolving]
  - Penile exfoliation [None]
  - Penile ulceration [None]
  - Purulent discharge [None]
  - Penile swelling [None]
